FAERS Safety Report 5627418-3 (Version None)
Quarter: 2008Q1

REPORT INFORMATION
  Report Type: 
  Country: None (occurrence: None)
  Receive Date: 20080215
  Receipt Date: 20080207
  Transmission Date: 20080703
  Serious: Yes (Hospitalization)
  Sender: FDA-Public Use
  Company Number: SE-BAXTER-2008BH001139

PATIENT
  Age: 59 Year
  Sex: Male

DRUGS (5)
  1. SEVOFLURANE [Suspect]
     Indication: ANAESTHESIA
     Dosage: DOSE UNIT:UNKNOWN
     Route: 055
     Dates: start: 20071204, end: 20071204
  2. SUCCINYLATED GELATIN [Suspect]
     Indication: PROPHYLAXIS
     Route: 042
     Dates: start: 20071204, end: 20071204
  3. ROPIVACAINE [Concomitant]
     Indication: ANAESTHESIA
     Dates: start: 20071204, end: 20071204
  4. FENTANYL [Concomitant]
     Indication: ANAESTHESIA
     Route: 042
     Dates: start: 20071204, end: 20071204
  5. PROPOFOL [Concomitant]
     Indication: ANAESTHESIA
     Route: 042
     Dates: start: 20071204, end: 20071204

REACTIONS (2)
  - ANAPHYLACTIC REACTION [None]
  - OXYGEN SATURATION DECREASED [None]
